FAERS Safety Report 5475030-1 (Version None)
Quarter: 2007Q4

REPORT INFORMATION
  Report Type: 
  Country: None (occurrence: None)
  Receive Date: 20071002
  Receipt Date: 20070911
  Transmission Date: 20080405
  Serious: No
  Sender: FDA-Public Use
  Company Number: CN-ELI_LILLY_AND_COMPANY-CN200709001760

PATIENT
  Age: 51 Year
  Sex: Male
  Weight: 95 kg

DRUGS (2)
  1. HUMULIN 70/30 [Suspect]
     Indication: DIABETES MELLITUS
     Dosage: 24 IU, EACH MORNING
     Route: 058
     Dates: start: 20070801
  2. HUMULIN 70/30 [Suspect]
     Dosage: 18 IU, EACH EVENING
     Route: 058
     Dates: start: 20070801

REACTIONS (2)
  - BLOOD GLUCOSE INCREASED [None]
  - FATIGUE [None]
